FAERS Safety Report 11088138 (Version 1)
Quarter: 2015Q2

REPORT INFORMATION
  Report Type: Spontaneous
  Country: CN (occurrence: None)
  Receive Date: 20150430
  Receipt Date: 20150430
  Transmission Date: 20150821
  Serious: Yes (Other)
  Sender: FDA-Public Use
  Company Number: CN2015GSK054515

PATIENT
  Age: 69 Year
  Sex: Male

DRUGS (3)
  1. HEPTODIN [Suspect]
     Active Substance: LAMIVUDINE
     Indication: ACQUIRED IMMUNODEFICIENCY SYNDROME
     Route: 048
     Dates: start: 20140710, end: 20141015
  2. ZIDOVUDINE. [Suspect]
     Active Substance: ZIDOVUDINE
     Indication: ACQUIRED IMMUNODEFICIENCY SYNDROME
     Route: 048
     Dates: start: 20140710, end: 20141015
  3. KALETRA [Suspect]
     Active Substance: LOPINAVIR\RITONAVIR
     Indication: ACQUIRED IMMUNODEFICIENCY SYNDROME
     Route: 048
     Dates: start: 20140710, end: 20141030

REACTIONS (8)
  - Nausea [None]
  - Off label use [None]
  - Vomiting [None]
  - Fatigue [None]
  - Gastritis [None]
  - Decreased appetite [None]
  - Dyspnoea [None]
  - Haematemesis [None]

NARRATIVE: CASE EVENT DATE: 20140710
